FAERS Safety Report 4587778-1 (Version None)
Quarter: 2005Q1

REPORT INFORMATION
  Report Type: 
  Country: None (occurrence: None)
  Receive Date: 20050125
  Receipt Date: 20040902
  Transmission Date: 20050727
  Serious: No
  Sender: FDA-Public Use
  Company Number: USA040977313

PATIENT
  Age: 77 Year
  Sex: Female

DRUGS (6)
  1. FORTEO [Suspect]
     Indication: OSTEOPOROSIS
     Dosage: 20 UG/1 DAY
     Dates: start: 20040603
  2. PREDNISONE [Concomitant]
  3. BEXTRA [Concomitant]
  4. XALATAN [Concomitant]
  5. TRIAMTERENE [Concomitant]
  6. ASPIRIN [Concomitant]

REACTIONS (1)
  - TOOTH DISCOLOURATION [None]
